FAERS Safety Report 9782432 (Version 1)
Quarter: 2013Q4

REPORT INFORMATION
  Report Type: Spontaneous
  Country: US (occurrence: US)
  Receive Date: 20131226
  Receipt Date: 20131226
  Transmission Date: 20140711
  Serious: Yes (Other)
  Sender: FDA-Public Use
  Company Number: US-JNJFOC-20131211189

PATIENT
  Sex: Female

DRUGS (12)
  1. TOPAMAX [Suspect]
     Indication: MIGRAINE PROPHYLAXIS
     Route: 048
     Dates: end: 2002
  2. TOPAMAX [Suspect]
     Indication: MIGRAINE PROPHYLAXIS
     Dosage: BEGAN ON AN UNSPECIFIED DATE IN 1999 OR 2000
     Route: 048
  3. TOPIRAMATE [Suspect]
     Indication: MIGRAINE PROPHYLAXIS
     Route: 048
     Dates: end: 201206
  4. BENZODIAZEPINE NOS [Suspect]
     Indication: ANXIETY
     Route: 065
  5. BENZODIAZEPINE NOS [Suspect]
     Indication: CONVULSION
     Route: 065
  6. LAMICTAL [Suspect]
     Indication: AFFECT LABILITY
     Route: 065
  7. XANAX [Concomitant]
     Indication: INSOMNIA
     Dosage: 1MG IN DAY AND 1.75MG AT NIGHT
     Route: 048
  8. XANAX [Concomitant]
     Indication: ANXIETY
     Dosage: 1MG IN DAY AND 1.75MG AT NIGHT
     Route: 048
  9. AMBIEN [Concomitant]
     Indication: INSOMNIA
     Route: 048
     Dates: start: 2011
  10. TRAZODONE [Concomitant]
     Indication: INSOMNIA
     Dosage: 250 MG IN DAY AND 300MG AT NIGHT
     Route: 065
  11. LEVOTHYROXINE [Concomitant]
     Indication: HYPOTHYROIDISM
     Route: 048
  12. BOTOX [Concomitant]
     Indication: MIGRAINE
     Route: 065

REACTIONS (6)
  - Nephrolithiasis [Unknown]
  - Abnormal loss of weight [Unknown]
  - Drug dependence [Not Recovered/Not Resolved]
  - Dizziness [Recovered/Resolved]
  - Alopecia [Recovered/Resolved]
  - Weight increased [Not Recovered/Not Resolved]
